FAERS Safety Report 14197532 (Version 5)
Quarter: 2017Q4

REPORT INFORMATION
  Report Type: Spontaneous
  Country: UA (occurrence: UA)
  Receive Date: 20171117
  Receipt Date: 20171222
  Transmission Date: 20180321
  Serious: Yes (Death, Other)
  Sender: FDA-Public Use
  Company Number: UA-ASTRAZENECA-2017SF15857

PATIENT
  Age: 60 Year
  Sex: Female

DRUGS (6)
  1. ANAPRILIN [Concomitant]
     Active Substance: PROPRANOLOL HYDROCHLORIDE
  2. BRILINTA [Suspect]
     Active Substance: TICAGRELOR
     Indication: ACUTE CORONARY SYNDROME
     Dosage: 180 MG , UNKNOWN
     Route: 048
     Dates: start: 20171108
  3. NITROGLICERIN [Concomitant]
     Active Substance: NITROGLYCERIN
  4. TROMBONET [Suspect]
     Active Substance: CLOPIDOGREL BISULFATE
     Dosage: 150 MG, UNKNOWN
     Route: 048
     Dates: start: 20171107
  5. HEPARIN [Concomitant]
     Active Substance: HEPARIN SODIUM
     Dates: start: 20171108
  6. BRILINTA [Suspect]
     Active Substance: TICAGRELOR
     Indication: ACUTE MYOCARDIAL INFARCTION
     Dosage: 180 MG , UNKNOWN
     Route: 048
     Dates: start: 20171108

REACTIONS (6)
  - Cerebral haematoma [Fatal]
  - Intraventricular haemorrhage [Fatal]
  - Haemorrhagic stroke [Fatal]
  - Brain oedema [Fatal]
  - Coma [Unknown]
  - Subarachnoid haemorrhage [Fatal]

NARRATIVE: CASE EVENT DATE: 20171108
